FAERS Safety Report 5630816-5 (Version None)
Quarter: 2008Q1

REPORT INFORMATION
  Report Type: 
  Country: None (occurrence: None)
  Receive Date: 20080219
  Receipt Date: 20080205
  Transmission Date: 20080703
  Serious: Yes (Death)
  Sender: FDA-Public Use
  Company Number: AU-RANBAXY-2008RR-12938

PATIENT

DRUGS (1)
  1. TERBINAFINE HCL [Suspect]
     Indication: FUNGAL INFECTION
     Dosage: 250 MG, QD
     Route: 048

REACTIONS (2)
  - HEPATITIS CHOLESTATIC [None]
  - HEPATORENAL FAILURE [None]
